FAERS Safety Report 24085367 (Version 1)
Quarter: 2024Q3

REPORT INFORMATION
  Report Type: Spontaneous
  Country: US (occurrence: None)
  Receive Date: 20240712
  Receipt Date: 20240712
  Transmission Date: 20241016
  Serious: Yes (Hospitalization)
  Sender: Public
  Company Number: None

PATIENT
  Age: 24 Year
  Sex: Male
  Weight: 76.5 kg

DRUGS (13)
  1. CLOZAPINE [Suspect]
     Active Substance: CLOZAPINE
     Indication: Schizophrenia
     Dosage: 200 MG DAILY ORAL?
     Route: 048
     Dates: start: 20240624, end: 20240711
  2. OLANZAPINE [Suspect]
     Active Substance: OLANZAPINE
     Indication: Schizophrenia
     Dosage: 2.5 MG DAILY ORAL
     Route: 048
     Dates: start: 20240709, end: 20240709
  3. Olanzapine 10 mg ODT [Concomitant]
     Dates: start: 20240403, end: 20240624
  4. Olanzapine 15 mg ODT [Concomitant]
     Dates: start: 20240403, end: 20240404
  5. olanzapine 20 mg ODT [Concomitant]
     Dates: start: 20240408, end: 20240429
  6. Olanzapine 5mg ODT [Concomitant]
     Dates: start: 20240413, end: 20240710
  7. OLANZAPINE [Concomitant]
     Active Substance: OLANZAPINE
     Dates: start: 20240507, end: 20240507
  8. OLANZAPINE [Concomitant]
     Active Substance: OLANZAPINE
     Dates: start: 20240508, end: 20240530
  9. OLANZAPINE [Concomitant]
     Active Substance: OLANZAPINE
     Dates: start: 20240709, end: 20240709
  10. Clozapine 12.5mg ODT [Concomitant]
     Dates: start: 20240624, end: 20240626
  11. CLOZAPINE [Concomitant]
     Active Substance: CLOZAPINE
     Dates: start: 20240625, end: 20240708
  12. CLOZAPINE [Concomitant]
     Active Substance: CLOZAPINE
     Dates: start: 20240629, end: 20240708
  13. CLOZAPINE [Concomitant]
     Active Substance: CLOZAPINE
     Dates: start: 20240709, end: 20240710

REACTIONS (4)
  - Tachycardia [None]
  - Chest pain [None]
  - Hyperhidrosis [None]
  - Myocardial infarction [None]

NARRATIVE: CASE EVENT DATE: 20240711
